FAERS Safety Report 19396385 (Version 1)
Quarter: 2021Q2

REPORT INFORMATION
  Report Type: Spontaneous
  Country: US (occurrence: US)
  Receive Date: 20210610
  Receipt Date: 20210610
  Transmission Date: 20210717
  Serious: Yes (Other)
  Sender: FDA-Public Use
  Company Number: US-SA-2021SA192380

PATIENT
  Age: 54 Year
  Sex: Female
  Weight: 90.7 kg

DRUGS (23)
  1. CUVITRU [Concomitant]
     Active Substance: HUMAN IMMUNOGLOBULIN G
  2. VITAMIN B12 [Concomitant]
     Active Substance: CYANOCOBALAMIN
  3. ORACEA [DOXYCYCLINE] [Concomitant]
  4. NASALCROM [Concomitant]
     Active Substance: CROMOLYN SODIUM
  5. CHLORTHALIDONE. [Concomitant]
     Active Substance: CHLORTHALIDONE
  6. AUBAGIO [Suspect]
     Active Substance: TERIFLUNOMIDE
     Indication: MULTIPLE SCLEROSIS
     Dosage: 14 MG, QD
     Route: 048
  7. PRILOSEC [Concomitant]
     Active Substance: OMEPRAZOLE MAGNESIUM
  8. SINGULAIR [Concomitant]
     Active Substance: MONTELUKAST SODIUM
  9. DULOXETINE HCL [Concomitant]
     Active Substance: DULOXETINE HYDROCHLORIDE
  10. NARCO [Concomitant]
  11. LMX4 [Concomitant]
     Active Substance: LIDOCAINE
  12. PROGESTERONE. [Concomitant]
     Active Substance: PROGESTERONE
  13. EPINEPHRINE. [Concomitant]
     Active Substance: EPINEPHRINE
  14. NAPROXEN. [Concomitant]
     Active Substance: NAPROXEN
  15. CETIRIZINE HYDROCHLORIDE. [Concomitant]
     Active Substance: CETIRIZINE HYDROCHLORIDE
  16. ATIVAN [Concomitant]
     Active Substance: LORAZEPAM
  17. BUPROPION HCL [Concomitant]
     Active Substance: BUPROPION HYDROCHLORIDE
  18. LIPITOR [Concomitant]
     Active Substance: ATORVASTATIN CALCIUM
  19. DIPHENHYDRAMINE. [Concomitant]
     Active Substance: DIPHENHYDRAMINE
  20. XHANCE [Concomitant]
     Active Substance: FLUTICASONE PROPIONATE
  21. ESTRADIOL. [Concomitant]
     Active Substance: ESTRADIOL
  22. BIOTIN [Concomitant]
     Active Substance: BIOTIN
  23. ACETAMINOPHEN. [Concomitant]
     Active Substance: ACETAMINOPHEN

REACTIONS (1)
  - Omphalitis [Unknown]

NARRATIVE: CASE EVENT DATE: 20210118
